FAERS Safety Report 13480411 (Version 1)
Quarter: 2017Q2

REPORT INFORMATION
  Report Type: Spontaneous
  Country: IT (occurrence: IT)
  Receive Date: 20170425
  Receipt Date: 20170425
  Transmission Date: 20170830
  Serious: Yes (Other)
  Sender: FDA-Public Use
  Company Number: IT-MYLANLABS-2017M1024383

PATIENT

DRUGS (20)
  1. METFORMIN [Suspect]
     Active Substance: METFORMIN HYDROCHLORIDE
     Indication: TYPE 2 DIABETES MELLITUS
     Dosage: 850 MG, TID
  2. DAPAGLIFLOZIN [Suspect]
     Active Substance: DAPAGLIFLOZIN
     Indication: TYPE 2 DIABETES MELLITUS
     Dosage: 10 MG, QD
     Dates: start: 201503
  3. ATORVASTATIN [Suspect]
     Active Substance: ATORVASTATIN
     Indication: DYSLIPIDAEMIA
     Dosage: UNK
     Dates: start: 200907
  4. PIOGLITAZONE. [Suspect]
     Active Substance: PIOGLITAZONE
     Indication: TYPE 2 DIABETES MELLITUS
     Dosage: UNK, QD
     Dates: start: 201405, end: 201410
  5. AMLODIPINE [Suspect]
     Active Substance: AMLODIPINE BESYLATE
     Indication: HYPERTENSION
     Dosage: UNK
  6. LIRAGLUTIDE [Suspect]
     Active Substance: LIRAGLUTIDE
     Dosage: 1.2 MG, UNK
  7. REPAGLINIDE. [Suspect]
     Active Substance: REPAGLINIDE
     Dosage: 0.5 MG, QD
     Dates: start: 201304
  8. REPAGLINIDE. [Suspect]
     Active Substance: REPAGLINIDE
     Dosage: 2.5 MG, QD
     Dates: start: 201504
  9. LIRAGLUTIDE [Suspect]
     Active Substance: LIRAGLUTIDE
     Indication: TYPE 2 DIABETES MELLITUS
     Dosage: 0.6 MG, UNK
     Dates: start: 201209
  10. INSULIN DEGLUDEC [Suspect]
     Active Substance: INSULIN DEGLUDEC
     Indication: TYPE 2 DIABETES MELLITUS
     Dosage: AT A DAILY DOSE OF 10 U AFTER DINNER
     Dates: start: 201410, end: 201504
  11. METFORMIN [Suspect]
     Active Substance: METFORMIN HYDROCHLORIDE
     Dosage: 1000 MG, TID
     Dates: start: 201504
  12. REPAGLINIDE. [Suspect]
     Active Substance: REPAGLINIDE
     Dosage: 0.5 MG, BID
     Dates: start: 201410
  13. RAMIPRIL. [Suspect]
     Active Substance: RAMIPRIL
     Indication: HYPERTENSION
     Dosage: UNK
  14. METFORMIN W/SITAGLIPTIN [Suspect]
     Active Substance: METFORMIN\SITAGLIPTIN PHOSPHATE
     Indication: TYPE 2 DIABETES MELLITUS
     Dosage: UNK UNK, BID
     Dates: start: 2008, end: 201209
  15. LIRAGLUTIDE [Suspect]
     Active Substance: LIRAGLUTIDE
     Dosage: 1.8 MG, QD
     Dates: end: 201410
  16. EXENATIDE [Suspect]
     Active Substance: EXENATIDE
     Indication: TYPE 2 DIABETES MELLITUS
     Dosage: 2 MG, QW
     Dates: start: 201504
  17. NEBIVOLOL. [Suspect]
     Active Substance: NEBIVOLOL
     Indication: HYPERTENSION
     Dosage: UNK
  18. EZETIMIBE W/SIMVASTATIN [Suspect]
     Active Substance: EZETIMIBE
     Indication: DYSLIPIDAEMIA
     Dosage: UNK
     Dates: start: 200907
  19. REPAGLINIDE. [Suspect]
     Active Substance: REPAGLINIDE
     Indication: TYPE 2 DIABETES MELLITUS
     Dosage: 1 DF, BID
     Dates: start: 201006, end: 201209
  20. REPAGLINIDE. [Suspect]
     Active Substance: REPAGLINIDE
     Dosage: 0.5 MG, QD
     Dates: start: 201405

REACTIONS (2)
  - Diabetes mellitus inadequate control [Recovering/Resolving]
  - Oedema peripheral [Unknown]
